FAERS Safety Report 18900982 (Version 2)
Quarter: 2021Q1

REPORT INFORMATION
  Report Type: Spontaneous
  Country: US (occurrence: US)
  Receive Date: 20210217
  Receipt Date: 20210223
  Transmission Date: 20210420
  Serious: Yes (Other)
  Sender: FDA-Public Use
  Company Number: US-AUROBINDO-AUR-APL-2021-005376

PATIENT
  Age: 38 Year
  Sex: Female

DRUGS (3)
  1. ACETAMINOPHEN TABLET [Suspect]
     Active Substance: ACETAMINOPHEN
     Indication: FACIAL PAIN
  2. ACETAMINOPHEN TABLET [Suspect]
     Active Substance: ACETAMINOPHEN
     Indication: NASAL CONGESTION
  3. ACETAMINOPHEN TABLET [Suspect]
     Active Substance: ACETAMINOPHEN
     Indication: OROPHARYNGEAL PAIN
     Dosage: UNK (FREQUENT INTRANASAL USE OF CRUSHED ACETAMINOPHEN TABLETS)
     Route: 045

REACTIONS (8)
  - Staphylococcal infection [Unknown]
  - Mucosal necrosis [Unknown]
  - Aspergillus infection [Unknown]
  - Incorrect route of product administration [Recovered/Resolved]
  - Wrong technique in product usage process [Recovered/Resolved]
  - Sinusitis [Recovered/Resolved]
  - Candida infection [Unknown]
  - Intentional product misuse [Recovered/Resolved]
